FAERS Safety Report 6024834-5 (Version None)
Quarter: 2008Q4

REPORT INFORMATION
  Report Type: 
  Country: None (occurrence: None)
  Receive Date: 20081230
  Receipt Date: 20081230
  Transmission Date: 20090506
  Serious: No
  Sender: FDA-Public Use
  Company Number: None

PATIENT
  Sex: Female
  Weight: 56.6996 kg

DRUGS (1)
  1. CHANTIX [Suspect]
     Indication: TOBACCO USER
     Dosage: 1 TAB 2X A DAY PO
     Route: 048
     Dates: start: 20070813, end: 20080220

REACTIONS (2)
  - ABNORMAL DREAMS [None]
  - MOOD SWINGS [None]
